FAERS Safety Report 14900796 (Version 5)
Quarter: 2018Q4

REPORT INFORMATION
  Report Type: Report from Study
  Country: DE (occurrence: DE)
  Receive Date: 20180516
  Receipt Date: 20181113
  Transmission Date: 20190204
  Serious: Yes (Life-Threatening, Other)
  Sender: FDA-Public Use
  Company Number: GB-ASTRAZENECA-2018SE50469

PATIENT
  Age: 65 Year
  Sex: Female

DRUGS (27)
  1. LIQUEMIN N [Suspect]
     Active Substance: HEPARIN SODIUM
     Indication: THROMBOSIS PROPHYLAXIS
     Route: 058
     Dates: start: 19990821, end: 19990826
  2. POTASSIUM [Concomitant]
     Active Substance: POTASSIUM
     Dosage: 40 M VAL
  3. NITROGLYCERIN. [Suspect]
     Active Substance: NITROGLYCERIN
     Indication: MYOCARDIAL INFARCTION
     Dosage: 2 MILLIGRAMS
     Route: 042
     Dates: start: 19990819, end: 19990820
  4. RINGERS SOLUTION [Concomitant]
     Active Substance: CALCIUM CHLORIDE\POTASSIUM CHLORIDE\SODIUM CHLORIDE
     Indication: VOLUME BLOOD DECREASED
     Dosage: 500.0ML UNKNOWN
     Route: 042
     Dates: start: 19990819, end: 19990823
  5. ESIDRIX [Suspect]
     Active Substance: HYDROCHLOROTHIAZIDE
     Indication: CARDIAC FAILURE
     Route: 048
     Dates: start: 19990823, end: 19990830
  6. PIRETANIDE [Suspect]
     Active Substance: PIRETANIDE
     Indication: CARDIAC FAILURE
     Route: 048
  7. ASPIRIN. [Suspect]
     Active Substance: ASPIRIN
     Indication: THROMBOSIS PROPHYLAXIS
     Route: 048
     Dates: start: 19990819
  8. ANTRA [Suspect]
     Active Substance: OMEPRAZOLE
     Indication: PROPHYLAXIS AGAINST GASTROINTESTINAL ULCER
     Route: 048
     Dates: start: 19990819, end: 19990831
  9. ZYLORIC [Suspect]
     Active Substance: ALLOPURINOL
     Indication: HYPERURICAEMIA
     Route: 048
     Dates: start: 19990820, end: 19990826
  10. ARELIX [Suspect]
     Active Substance: PIRETANIDE
     Indication: CARDIAC FAILURE
     Route: 048
     Dates: start: 19990820
  11. BIFITERAL [Suspect]
     Active Substance: LACTULOSE
     Indication: CONSTIPATION
     Route: 048
     Dates: start: 19990820
  12. KCL [Suspect]
     Active Substance: POTASSIUM CHLORIDE
     Indication: HYPOKALAEMIA
     Dates: start: 19990819, end: 19990823
  13. TAVEGIL [Concomitant]
     Active Substance: CLEMASTINE FUMARATE
  14. ASPIRIN. [Suspect]
     Active Substance: ASPIRIN
     Indication: THROMBOSIS PROPHYLAXIS
     Dosage: ASS ^CT-ARZNEIMITTEL, 100 MG
     Route: 048
  15. MINERALS NOS [Suspect]
     Active Substance: MINERALS
     Route: 065
  16. DECORTIN [Concomitant]
     Active Substance: PREDNISONE
  17. LASIX [Suspect]
     Active Substance: FUROSEMIDE
     Indication: CARDIAC FAILURE
     Route: 048
     Dates: start: 19990823, end: 19990830
  18. MARCUMAR [Suspect]
     Active Substance: PHENPROCOUMON
     Indication: THROMBOSIS PROPHYLAXIS
     Route: 048
     Dates: start: 19990821
  19. LIQUEMIN N [Suspect]
     Active Substance: HEPARIN SODIUM
     Indication: THROMBOSIS PROPHYLAXIS
     Route: 042
     Dates: start: 19990819, end: 19990820
  20. REMESTAN [Suspect]
     Active Substance: TEMAZEPAM
     Indication: RESTLESSNESS
     Route: 048
     Dates: start: 19990819, end: 19990823
  21. CORVATON [Suspect]
     Active Substance: MOLSIDOMINE
     Indication: MYOCARDIAL INFARCTION
     Dosage: 1.0DF ONCE/SINGLE ADMINISTRATION
     Route: 048
     Dates: start: 19990820, end: 19990820
  22. VALSARTAN. [Suspect]
     Active Substance: VALSARTAN
     Dosage: UNKNOWN
     Route: 065
  23. OXAZEPAM. [Suspect]
     Active Substance: OXAZEPAM
     Indication: RESTLESSNESS
     Route: 048
     Dates: start: 19990819, end: 19990823
  24. LASIX [Suspect]
     Active Substance: FUROSEMIDE
     Indication: CARDIAC FAILURE
     Route: 042
     Dates: start: 19990820, end: 19990823
  25. BACTRIM-FORTE [Suspect]
     Active Substance: SULFAMETHOXAZOLE\TRIMETHOPRIM
     Indication: URINARY TRACT INFECTION
     Route: 048
     Dates: start: 19990823, end: 19990828
  26. CAPTOPRIL. [Suspect]
     Active Substance: CAPTOPRIL
     Dosage: UNKNOWN
     Route: 065
  27. GLUCOSE [Concomitant]
     Active Substance: DEXTROSE
     Indication: VOLUME BLOOD DECREASED
     Route: 042
     Dates: start: 19990820, end: 19990823

REACTIONS (4)
  - Blood urea increased [Unknown]
  - Blood creatinine increased [Unknown]
  - Toxic epidermal necrolysis [Unknown]
  - Urinary tract infection [Unknown]

NARRATIVE: CASE EVENT DATE: 19990830
